FAERS Safety Report 14456089 (Version 2)
Quarter: 2018Q1

REPORT INFORMATION
  Report Type: Spontaneous
  Country: JP (occurrence: JP)
  Receive Date: 20180130
  Receipt Date: 20180302
  Transmission Date: 20180509
  Serious: Yes (Other)
  Sender: FDA-Public Use
  Company Number: JP-ORION CORPORATION ORION PHARMA-ENT 2018-0014

PATIENT
  Age: 73 Year
  Sex: Female

DRUGS (7)
  1. MIRAPEX [Concomitant]
     Active Substance: PRAMIPEXOLE DIHYDROCHLORIDE
     Route: 065
  2. APOKYN [Concomitant]
     Active Substance: APOMORPHINE HYDROCHLORIDE
     Route: 058
  3. MADOPAR [Concomitant]
     Active Substance: BENSERAZIDE HYDROCHLORIDE\LEVODOPA
     Dosage: 450 MG (6 DIVIDED DOSES)
     Route: 065
  4. CABASER [Concomitant]
     Active Substance: CABERGOLINE
     Route: 065
  5. TRERIEF [Concomitant]
     Active Substance: ZONISAMIDE
     Route: 065
  6. SYMMETREL [Concomitant]
     Active Substance: AMANTADINE HYDROCHLORIDE
     Dosage: 200 MG (2 DIVIDED DOSES)
     Route: 065
  7. COMTAN [Suspect]
     Active Substance: ENTACAPONE
     Indication: THERAPEUTIC RESPONSE SHORTENED
     Route: 048

REACTIONS (3)
  - Parkinson^s disease [Recovering/Resolving]
  - Dyskinesia [Recovering/Resolving]
  - Therapeutic response shortened [Recovering/Resolving]
